FAERS Safety Report 9504785 (Version 2)
Quarter: 2013Q4

REPORT INFORMATION
  Report Type: Spontaneous
  Country: FR (occurrence: FR)
  Receive Date: 20130906
  Receipt Date: 20131209
  Transmission Date: 20140711
  Serious: Yes (Hospitalization)
  Sender: FDA-Public Use
  Company Number: FR-ROCHE-1270924

PATIENT
  Age: 66 Year
  Sex: Male

DRUGS (4)
  1. ZELBORAF [Suspect]
     Indication: METASTATIC MALIGNANT MELANOMA
     Route: 048
     Dates: start: 20130304, end: 201306
  2. ZELBORAF [Suspect]
     Route: 048
     Dates: start: 201306, end: 201309
  3. ZELBORAF [Suspect]
     Route: 048
     Dates: start: 201302
  4. MUPHORAN [Concomitant]
     Route: 065
     Dates: start: 20131022

REACTIONS (1)
  - Eosinophilia [Recovered/Resolved]
